FAERS Safety Report 22034516 (Version 1)
Quarter: 2023Q1

REPORT INFORMATION
  Report Type: Spontaneous
  Country: US (occurrence: None)
  Receive Date: 20230222
  Receipt Date: 20230222
  Transmission Date: 20230418
  Serious: No
  Sender: FDA-Public Use
  Company Number: None

PATIENT
  Sex: Male

DRUGS (2)
  1. OPSUMIT [Suspect]
     Active Substance: MACITENTAN
     Indication: Pulmonary arterial hypertension
     Dosage: 10MG ONCE DAILY BY MOUTH?
     Route: 048
     Dates: start: 202212
  2. UPTRAVI [Suspect]
     Active Substance: SELEXIPAG

REACTIONS (10)
  - Product use issue [None]
  - Gingivitis [None]
  - Productive cough [None]
  - Sputum discoloured [None]
  - Ear congestion [None]
  - Dyspnoea [None]
  - Nasopharyngitis [None]
  - Bacterial infection [None]
  - Therapy interrupted [None]
  - Dyspnoea [None]
